FAERS Safety Report 6976634-7 (Version None)
Quarter: 2010Q3

REPORT INFORMATION
  Report Type: 
  Country: None (occurrence: None)
  Receive Date: 20100910
  Receipt Date: 20100902
  Transmission Date: 20110219
  Serious: Yes (Hospitalization, Other)
  Sender: FDA-Public Use
  Company Number: US-PFIZER INC-2010060508

PATIENT
  Sex: Male
  Weight: 72.5 kg

DRUGS (1)
  1. CLEOCIN [Suspect]
     Indication: OSTEITIS
     Dosage: 300 MG, 3X/DAY
     Route: 048
     Dates: start: 20100430, end: 20100505

REACTIONS (2)
  - CARDIAC ARREST [None]
  - LOSS OF CONSCIOUSNESS [None]
